FAERS Safety Report 6653708-1 (Version None)
Quarter: 2010Q1

REPORT INFORMATION
  Report Type: 
  Country: None (occurrence: None)
  Receive Date: 20100326
  Receipt Date: 20081210
  Transmission Date: 20100710
  Serious: Yes (Death, Hospitalization)
  Sender: FDA-Public Use
  Company Number: CY-PFIZER INC-2008082401

PATIENT
  Age: 59 Year
  Sex: Male
  Weight: 97 kg

DRUGS (11)
  1. FLUOROURACIL [Suspect]
     Indication: COLORECTAL CANCER
     Dosage: 840 MG, LOADING; 1 EVERY 2 WEEKS
     Route: 042
     Dates: start: 20080919, end: 20080919
  2. FLUOROURACIL [Suspect]
     Dosage: 5040 MG, INFUSION,  EVERY 2 WEEKS
     Route: 042
     Dates: start: 20080919, end: 20080921
  3. BLINDED *NO SUBJECT DRUG [Suspect]
     Indication: COLORECTAL CANCER
     Dosage: 37.5 MG, 1X/DAY
     Route: 048
     Dates: start: 20080919, end: 20080926
  4. BLINDED *PLACEBO [Suspect]
     Indication: COLORECTAL CANCER
     Dosage: 37.5 MG, 1X/DAY
     Route: 048
     Dates: start: 20080919, end: 20080926
  5. BLINDED SUNITINIB MALATE [Suspect]
     Indication: COLORECTAL CANCER
     Dosage: 37.5 MG, 1X/DAY
     Route: 048
     Dates: start: 20080919, end: 20080926
  6. IRINOTECAN HCL [Suspect]
     Indication: COLORECTAL CANCER
     Dosage: 378 MG, 1 EVERY 2 WEEKS
     Route: 042
     Dates: start: 20080919, end: 20080919
  7. CALCIUM FOLINATE [Suspect]
     Indication: COLORECTAL CANCER
     Dosage: 420 MG, 1 EVERY 2 WEEKS
     Route: 042
     Dates: start: 20080919, end: 20080919
  8. METOCLOPRAMIDE [Concomitant]
     Indication: PROPHYLAXIS OF NAUSEA AND VOMITING
     Dates: start: 20080919
  9. DEXAMETHASONE [Concomitant]
     Indication: PROPHYLAXIS OF NAUSEA AND VOMITING
     Dates: start: 20080919
  10. OMEPRAZOLE [Concomitant]
     Indication: PROPHYLAXIS
     Dates: start: 20080919
  11. LOPERAMIDE [Concomitant]
     Indication: DIARRHOEA
     Dosage: X 7 DAILY
     Dates: start: 20080919

REACTIONS (2)
  - ACUTE MYOCARDIAL INFARCTION [None]
  - INTESTINAL OBSTRUCTION [None]
